FAERS Safety Report 18309999 (Version 2)
Quarter: 2020Q4

REPORT INFORMATION
  Report Type: Spontaneous
  Country: US (occurrence: US)
  Receive Date: 20200925
  Receipt Date: 20201227
  Transmission Date: 20210113
  Serious: No
  Sender: FDA-Public Use
  Company Number: US-CELLTRION INC.-2020US025185

PATIENT

DRUGS (2)
  1. HERZUMA [Suspect]
     Active Substance: TRASTUZUMAB-PKRB
     Indication: GASTRIC NEOPLASM
     Dosage: 218 MG EVERY 2 WEEKS
     Route: 042
     Dates: start: 20200810
  2. HERZUMA [Suspect]
     Active Substance: TRASTUZUMAB-PKRB
     Dosage: UNK
     Route: 042
     Dates: start: 20200908

REACTIONS (2)
  - Underdose [Unknown]
  - Off label use [Unknown]
